FAERS Safety Report 7982632-7 (Version None)
Quarter: 2011Q4

REPORT INFORMATION
  Report Type: 
  Country: None (occurrence: None)
  Receive Date: 20111215
  Receipt Date: 20111208
  Transmission Date: 20120403
  Serious: Yes (Hospitalization)
  Sender: FDA-Public Use
  Company Number: DE-GLAXOSMITHKLINE-B0769382A

PATIENT
  Sex: Female
  Weight: 58 kg

DRUGS (8)
  1. LAPATINIB [Suspect]
     Indication: BREAST CANCER
     Dosage: 750MG PER DAY
     Route: 048
     Dates: start: 20111020, end: 20111207
  2. LOPERAMIDE [Concomitant]
     Route: 065
     Dates: start: 20111103
  3. HERCEPTIN [Suspect]
     Indication: BREAST CANCER
     Dosage: 390MG CYCLIC
     Route: 042
     Dates: start: 20111020, end: 20111207
  4. PACLITAXEL [Suspect]
     Indication: BREAST CANCER
     Dosage: 129MG CYCLIC
     Route: 042
     Dates: start: 20111020, end: 20111207
  5. CARBOPLATIN [Suspect]
     Indication: BREAST CANCER
     Dosage: 237MG CYCLIC
     Route: 042
     Dates: start: 20111020, end: 20111207
  6. METOCLOPRAMIDE [Concomitant]
     Route: 065
     Dates: start: 20111103
  7. DOXORUBICIN HCL [Suspect]
     Indication: BREAST CANCER
     Dosage: 32.2MG CYCLIC
     Route: 042
     Dates: start: 20111020, end: 20111207
  8. FORTECORTIN [Concomitant]
     Dosage: 4MG PER DAY
     Route: 065
     Dates: start: 20111130

REACTIONS (1)
  - GENERAL PHYSICAL HEALTH DETERIORATION [None]
